FAERS Safety Report 8318984-8 (Version None)
Quarter: 2012Q2

REPORT INFORMATION
  Report Type: 
  Country: None (occurrence: None)
  Receive Date: 20120427
  Receipt Date: 20120420
  Transmission Date: 20120825
  Serious: Yes (Hospitalization)
  Sender: FDA-Public Use
  Company Number: DE-ABBOTT-12P-062-0928028-00

PATIENT
  Sex: Male

DRUGS (3)
  1. CURCUMA [Concomitant]
     Indication: PRODUCT USED FOR UNKNOWN INDICATION
     Route: 048
  2. HUMIRA [Suspect]
     Indication: CROHN'S DISEASE
     Route: 058
     Dates: start: 20081113
  3. FERROUS SULFATE TAB [Concomitant]
     Indication: PRODUCT USED FOR UNKNOWN INDICATION
     Dosage: UNK.

REACTIONS (7)
  - CHILLS [None]
  - ARRHYTHMIA [None]
  - HYPERTENSION [None]
  - NASOPHARYNGITIS [None]
  - PYREXIA [None]
  - NEPHROLITHIASIS [None]
  - STAPHYLOCOCCAL SEPSIS [None]
